FAERS Safety Report 9426442 (Version 2)
Quarter: 2013Q4

REPORT INFORMATION
  Report Type: Spontaneous
  Country: US (occurrence: US)
  Receive Date: 20130730
  Receipt Date: 20131211
  Transmission Date: 20140711
  Serious: Yes (Other)
  Sender: FDA-Public Use
  Company Number: US-MERCK-1307USA015444

PATIENT
  Sex: 0

DRUGS (1)
  1. SYLATRON [Suspect]
     Indication: MALIGNANT MELANOMA STAGE III
     Dosage: STRENGTH 296/1.25

REACTIONS (1)
  - Metastatic malignant melanoma [Unknown]
